FAERS Safety Report 18022949 (Version 1)
Quarter: 2020Q3

REPORT INFORMATION
  Report Type: Spontaneous
  Country: US (occurrence: US)
  Receive Date: 20200715
  Receipt Date: 20200715
  Transmission Date: 20201103
  Serious: No
  Sender: FDA-Public Use
  Company Number: US-ALLERGAN-2020020US

PATIENT
  Age: 45 Year
  Sex: Female

DRUGS (3)
  1. UBRELVY [Suspect]
     Active Substance: UBROGEPANT
     Indication: MIGRAINE
     Dosage: 100 MG
  2. UBRELVY [Suspect]
     Active Substance: UBROGEPANT
     Dosage: 600 MG, Q2HR
     Route: 065
     Dates: start: 20200504, end: 20200505
  3. AIMOVIG [Concomitant]
     Active Substance: ERENUMAB-AOOE
     Indication: MIGRAINE PROPHYLAXIS
     Dosage: 140 MG
     Dates: start: 20200511

REACTIONS (3)
  - Overdose [Unknown]
  - Migraine [Recovering/Resolving]
  - Drug ineffective [Unknown]

NARRATIVE: CASE EVENT DATE: 20200504
